FAERS Safety Report 5363165-3 (Version None)
Quarter: 2007Q2

REPORT INFORMATION
  Report Type: 
  Country: None (occurrence: None)
  Receive Date: 20070620
  Receipt Date: 20070612
  Transmission Date: 20071010
  Serious: Yes (Other)
  Sender: FDA-Public Use
  Company Number: PHBS2007BR08084

PATIENT
  Age: 15 Year
  Sex: Female

DRUGS (2)
  1. RITALIN [Suspect]
     Indication: PSYCHOMOTOR HYPERACTIVITY
     Dosage: 200 MG, ONCE/SINGLE
     Route: 048
     Dates: start: 20070509, end: 20070509
  2. RITALIN [Suspect]
     Dosage: 10 MG, TID
     Route: 048
     Dates: start: 20060101

REACTIONS (3)
  - GASTRIC LAVAGE [None]
  - INTENTIONAL OVERDOSE [None]
  - SUICIDE ATTEMPT [None]
